FAERS Safety Report 8510298 (Version 2)
Quarter: 2012Q4

REPORT INFORMATION
  Report Type: Report from Study
  Country: DE (occurrence: DE)
  Receive Date: 20120413
  Receipt Date: 20121212
  Transmission Date: 20130627
  Serious: Yes (Hospitalization)
  Sender: FDA-Public Use
  Company Number: DE-ABBOTT-12P-062-0924520-00

PATIENT
  Age: 75 Year
  Sex: Female

DRUGS (4)
  1. HUMIRA 40 MG/ 0.8 ML PRE-FILLED SYRINGE [Suspect]
     Indication: PSORIATIC ARTHROPATHY
     Route: 058
     Dates: start: 20091008, end: 20120924
  2. METOPROLOL [Concomitant]
     Indication: HYPERTENSION
  3. CORTISONE [Concomitant]
     Indication: PSORIATIC ARTHROPATHY
     Dates: start: 2001, end: 2012
  4. CELEBREX [Concomitant]
     Indication: PSORIATIC ARTHROPATHY
     Dates: start: 2012, end: 2012

REACTIONS (4)
  - Cerebrovascular accident [Recovering/Resolving]
  - Memory impairment [Unknown]
  - Disorientation [Unknown]
  - Motor dysfunction [Unknown]
